FAERS Safety Report 10955419 (Version 1)
Quarter: 2015Q1

REPORT INFORMATION
  Report Type: Spontaneous
  Country: US (occurrence: None)
  Receive Date: 20150325
  Receipt Date: 20150325
  Transmission Date: 20150721
  Serious: Yes (Death, Hospitalization)
  Sender: FDA-Public Use
  Company Number: None

PATIENT
  Age: 8 Year
  Sex: Male
  Weight: 30 kg

DRUGS (1)
  1. CYCLOPHOSPHAMIDE. [Suspect]
     Active Substance: CYCLOPHOSPHAMIDE
     Dosage: MAINTENANCE CY 9 IV 1000 MG DAY 1 + 2
     Route: 042
     Dates: end: 20110310

REACTIONS (6)
  - Acute respiratory distress syndrome [None]
  - Pyrexia [None]
  - Septic shock [None]
  - Escherichia infection [None]
  - Neutropenia [None]
  - Multi-organ failure [None]

NARRATIVE: CASE EVENT DATE: 20110322
